FAERS Safety Report 10106186 (Version 2)
Quarter: 2014Q2

REPORT INFORMATION
  Report Type: Other
  Country: US (occurrence: US)
  Receive Date: 20140424
  Receipt Date: 20140612
  Transmission Date: 20141212
  Serious: Yes (Other)
  Sender: FDA-Public Use
  Company Number: US-GSKPPD-2014GSK000960

PATIENT
  Age: 58 Year
  Sex: Male
  Weight: 91.25 kg

DRUGS (7)
  1. AVANDIA [Suspect]
     Indication: DIABETES MELLITUS
     Route: 048
     Dates: start: 20000719, end: 200712
  2. PLAVIX [Concomitant]
  3. ASPIRIN [Concomitant]
  4. ACCUPRIL [Concomitant]
  5. NITROL [Concomitant]
     Route: 060
  6. PRAVACHOL [Concomitant]
     Dosage: 40 QHS
  7. ATENOLOL [Concomitant]

REACTIONS (2)
  - Coronary arterial stent insertion [Recovered/Resolved]
  - Coronary artery disease [Unknown]
